FAERS Safety Report 5933969-4 (Version None)
Quarter: 2008Q4

REPORT INFORMATION
  Report Type: 
  Country: None (occurrence: None)
  Receive Date: 20081028
  Receipt Date: 20081028
  Transmission Date: 20090506
  Serious: Yes (Other)
  Sender: FDA-Public Use
  Company Number: None

PATIENT
  Age: 80 Year
  Sex: Female
  Weight: 77 kg

DRUGS (1)
  1. LOVENOX [Suspect]
     Indication: ANTICOAGULANT THERAPY
     Dosage: 77 MG EVERY 12 HOURS SQ
     Route: 058
     Dates: start: 20080106, end: 20080108

REACTIONS (1)
  - ABDOMINAL WALL HAEMATOMA [None]
